FAERS Safety Report 13044024 (Version 1)
Quarter: 2016Q4

REPORT INFORMATION
  Report Type: Spontaneous
  Country: KR (occurrence: KR)
  Receive Date: 20161220
  Receipt Date: 20161220
  Transmission Date: 20170207
  Serious: Yes (Other)
  Sender: FDA-Public Use
  Company Number: KR-ROCHE-1869196

PATIENT
  Age: 3 Year

DRUGS (1)
  1. TAMIFLU [Suspect]
     Active Substance: OSELTAMIVIR PHOSPHATE
     Indication: INFLUENZA
     Route: 048

REACTIONS (3)
  - Nightmare [Not Recovered/Not Resolved]
  - Hypothermia [Not Recovered/Not Resolved]
  - Hallucination, auditory [Not Recovered/Not Resolved]
